FAERS Safety Report 25714410 (Version 1)
Quarter: 2025Q3

REPORT INFORMATION
  Report Type: Spontaneous
  Country: EU (occurrence: EU)
  Receive Date: 20250822
  Receipt Date: 20250822
  Transmission Date: 20251020
  Serious: Yes (Other)
  Sender: AUROBINDO
  Company Number: EU-AFSSAPS-GR2025001224

PATIENT
  Age: 74 Year
  Sex: Male
  Weight: 103 kg

DRUGS (2)
  1. LIDOCAINE [Suspect]
     Active Substance: LIDOCAINE
     Indication: Skin test
     Route: 003
     Dates: start: 20221021, end: 20221021
  2. CARBOCAINE [Suspect]
     Active Substance: MEPIVACAINE HYDROCHLORIDE
     Indication: Anaesthesia
     Route: 065
     Dates: start: 20180814, end: 20180814

REACTIONS (3)
  - Type I hypersensitivity [Recovered/Resolved]
  - Cross sensitivity reaction [Recovered/Resolved]
  - Skin test positive [Recovered/Resolved]

NARRATIVE: CASE EVENT DATE: 20180814
